FAERS Safety Report 5634852-4 (Version None)
Quarter: 2008Q1

REPORT INFORMATION
  Report Type: 
  Country: None (occurrence: None)
  Receive Date: 20080131
  Receipt Date: 20071107
  Transmission Date: 20080703
  Serious: No
  Sender: FDA-Public Use
  Company Number: 163-21880-07110519

PATIENT
  Age: 68 Year
  Sex: Male

DRUGS (1)
  1. REVLIMID [Suspect]
     Indication: MULTIPLE MYELOMA
     Dosage: 10 MG, DAILY 14/28 DAYS, ORAL
     Route: 048
     Dates: start: 20071016

REACTIONS (7)
  - BACK PAIN [None]
  - CONSTIPATION [None]
  - DIZZINESS [None]
  - PAIN [None]
  - PAIN IN EXTREMITY [None]
  - PLATELET COUNT DECREASED [None]
  - WHITE BLOOD CELL COUNT DECREASED [None]
